FAERS Safety Report 7250397-2 (Version None)
Quarter: 2011Q1

REPORT INFORMATION
  Report Type: 
  Country: None (occurrence: None)
  Receive Date: 20110128
  Receipt Date: 20110118
  Transmission Date: 20110831
  Serious: Yes (Hospitalization)
  Sender: FDA-Public Use
  Company Number: TR-ROCHE-745329

PATIENT
  Sex: Female
  Weight: 73 kg

DRUGS (4)
  1. BEVACIZUMAB [Suspect]
     Dosage: LAST DOSE PRIOR TO SAE:12 NOV 2010, FORM : VIAL
     Route: 042
     Dates: start: 20100820, end: 20101129
  2. DOCETAXEL [Suspect]
     Dosage: DOSE REDUCED
     Route: 042
     Dates: start: 20100302
  3. DOCETAXEL [Suspect]
     Indication: BREAST CANCER METASTATIC
     Route: 042
     Dates: start: 20091112
  4. BEVACIZUMAB [Suspect]
     Indication: BREAST CANCER METASTATIC
     Dosage: FORM: VIAL
     Route: 042
     Dates: start: 20091112

REACTIONS (1)
  - ANURIA [None]
